FAERS Safety Report 11560331 (Version 1)
Quarter: 2015Q3

REPORT INFORMATION
  Report Type: Spontaneous
  Country: US (occurrence: US)
  Receive Date: 20150928
  Receipt Date: 20150928
  Transmission Date: 20151125
  Serious: No
  Sender: FDA-Public Use
  Company Number: US-PERRIGO-15US004825

PATIENT
  Age: 51 Year
  Sex: Female
  Weight: 64.85 kg

DRUGS (6)
  1. NICOTINE POLACRILEX, COATED MINT FLAVOR [Suspect]
     Active Substance: NICOTINE
     Dosage: 2 MG, QOD
     Route: 002
     Dates: start: 20150403, end: 20150501
  2. NICOTINE POLACRILEX, COATED FRUIT FLAVOR [Suspect]
     Active Substance: NICOTINE
     Dosage: 2 MG, QOD
     Route: 002
     Dates: start: 20150403, end: 20150501
  3. NICOTINE POLACRILEX [Suspect]
     Active Substance: NICOTINE
     Indication: SMOKING CESSATION THERAPY
     Dosage: 2 MG, EVERY 4 HOURS
     Route: 002
     Dates: start: 20150315, end: 20150402
  4. NICOTINE POLACRILEX [Suspect]
     Active Substance: NICOTINE
     Dosage: 2 MG, QOD
     Route: 002
     Dates: start: 20150403, end: 20150501
  5. NICOTINE POLACRILEX, COATED MINT FLAVOR [Suspect]
     Active Substance: NICOTINE
     Indication: SMOKING CESSATION THERAPY
     Dosage: 2 MG, EVERY 4 HOURS
     Route: 002
     Dates: start: 20150315, end: 20150402
  6. PLAQUENIL [Concomitant]
     Active Substance: HYDROXYCHLOROQUINE SULFATE
     Indication: SYSTEMIC LUPUS ERYTHEMATOSUS
     Dosage: UNK
     Route: 048
     Dates: start: 2007

REACTIONS (2)
  - Wrong technique in product usage process [Recovered/Resolved]
  - Nicotine dependence [Not Recovered/Not Resolved]

NARRATIVE: CASE EVENT DATE: 20150403
